FAERS Safety Report 4821327-5 (Version None)
Quarter: 2005Q4

REPORT INFORMATION
  Report Type: 
  Country: None (occurrence: None)
  Receive Date: 20051107
  Receipt Date: 20050819
  Transmission Date: 20060501
  Serious: No
  Sender: FDA-Public Use
  Company Number: US-GLAXOSMITHKLINE-A0571454A

PATIENT
  Age: 66 Year
  Sex: Female
  Weight: 93.6 kg

DRUGS (10)
  1. AVANDAMET [Suspect]
     Route: 048
     Dates: start: 20050802
  2. CRESTOR [Concomitant]
  3. LOTREL [Concomitant]
  4. THYROID TAB [Concomitant]
  5. LIBRAX [Concomitant]
  6. ZYRTEC [Concomitant]
  7. LASIX [Concomitant]
  8. INDERAL [Concomitant]
  9. NIZATIDINE [Concomitant]
  10. MEPROBAMATE [Concomitant]

REACTIONS (3)
  - BLOOD GLUCOSE INCREASED [None]
  - LOCAL SWELLING [None]
  - RASH [None]
